FAERS Safety Report 24979553 (Version 1)
Quarter: 2025Q1

REPORT INFORMATION
  Report Type: Spontaneous
  Country: US (occurrence: US)
  Receive Date: 20250218
  Receipt Date: 20250218
  Transmission Date: 20250409
  Serious: Yes (Other)
  Sender: Haleon PLC
  Company Number: US-HALEON-2228208

PATIENT

DRUGS (2)
  1. DICLOFENAC [Suspect]
     Active Substance: DICLOFENAC
     Indication: Sjogren^s syndrome
  2. FLUOXETINE [Suspect]
     Active Substance: FLUOXETINE HYDROCHLORIDE
     Indication: Product used for unknown indication

REACTIONS (12)
  - Sjogren^s syndrome [Unknown]
  - Dry mouth [Unknown]
  - Joint stiffness [Unknown]
  - Epistaxis [Unknown]
  - Hypertension [Unknown]
  - Joint swelling [Unknown]
  - Dry skin [Unknown]
  - Pain in extremity [Unknown]
  - Arthralgia [Unknown]
  - Back pain [Unknown]
  - Dry eye [Unknown]
  - Rheumatoid factor increased [Unknown]
